FAERS Safety Report 22109664 (Version 1)
Quarter: 2023Q1

REPORT INFORMATION
  Report Type: Spontaneous
  Country: CA (occurrence: CA)
  Receive Date: 20230317
  Receipt Date: 20230317
  Transmission Date: 20230417
  Serious: Yes (Other)
  Sender: FDA-Public Use
  Company Number: CA-Vifor (International) Inc.-VIT-2023-01815

PATIENT
  Age: 79 Year
  Sex: Male

DRUGS (13)
  1. VELPHORO [Suspect]
     Active Substance: SUCROFERRIC OXYHYDROXIDE
     Indication: Hyperphosphataemia
     Route: 048
  2. ACETAMINOPHEN [Concomitant]
     Active Substance: ACETAMINOPHEN
  3. ALENDRONATE SODIUM\CHOLECALCIFEROL [Concomitant]
     Active Substance: ALENDRONATE SODIUM\CHOLECALCIFEROL
     Route: 048
  4. ARANESP [Concomitant]
     Active Substance: DARBEPOETIN ALFA
  5. CALCITRIOL [Concomitant]
     Active Substance: CALCITRIOL
  6. FERROUS FUMARATE [Concomitant]
     Active Substance: FERROUS FUMARATE
  7. FOSINOPRIL [Concomitant]
     Active Substance: FOSINOPRIL
  8. FUROSEMIDE [Concomitant]
     Active Substance: FUROSEMIDE
  9. GRAVOL [Concomitant]
     Active Substance: DIMENHYDRINATE
  10. ROSUVASTATIN [Concomitant]
     Active Substance: ROSUVASTATIN
     Route: 065
  11. TAMSULOSIN [Concomitant]
     Active Substance: TAMSULOSIN
  12. TRAVOPROST [Concomitant]
     Active Substance: TRAVOPROST
  13. VITAMIN C [Concomitant]
     Active Substance: ASCORBIC ACID

REACTIONS (2)
  - Oral pruritus [Unknown]
  - Swollen tongue [Unknown]
